FAERS Safety Report 22168140 (Version 1)
Quarter: 2023Q2

REPORT INFORMATION
  Report Type: Spontaneous
  Country: PT (occurrence: PT)
  Receive Date: 20230403
  Receipt Date: 20230403
  Transmission Date: 20230721
  Serious: Yes (Disabling)
  Sender: FDA-Public Use
  Company Number: None

PATIENT
  Age: 72 Year
  Sex: Female
  Weight: 50 kg

DRUGS (7)
  1. DONEPEZIL HYDROCHLORIDE [Suspect]
     Active Substance: DONEPEZIL HYDROCHLORIDE
     Indication: Dementia Alzheimer^s type
     Dosage: 5 MG, QD (1 COMPRIMIDO AO JANTAR)
     Route: 048
     Dates: start: 20230119, end: 20230202
  2. ASPIRIN [Concomitant]
     Active Substance: ASPIRIN
     Indication: Product used for unknown indication
     Dosage: 100 MG, QD
     Route: 048
  3. SPIRONOLACTONE [Concomitant]
     Active Substance: SPIRONOLACTONE
     Indication: Product used for unknown indication
     Dosage: UNK
     Route: 048
  4. LISINOPRILHYDROCHLOROTHIAZIDE RATIOPHARM [Concomitant]
     Indication: Product used for unknown indication
     Dosage: 32.5 MG,QD
     Route: 048
  5. CIPROTERONA [Concomitant]
     Indication: Product used for unknown indication
     Dosage: UNK
     Route: 048
  6. UNILAN [Concomitant]
     Indication: Product used for unknown indication
     Dosage: 0.5 MG,QD
     Route: 048
  7. FLUOXETINE [Concomitant]
     Active Substance: FLUOXETINE HYDROCHLORIDE
     Indication: Product used for unknown indication
     Dosage: 20 MG, BID (DIA SIM DIA NAO)
     Route: 048

REACTIONS (7)
  - Pain [Recovering/Resolving]
  - Diarrhoea [Recovered/Resolved]
  - Walking disability [Recovering/Resolving]
  - Vomiting [Recovered/Resolved]
  - Pain [Recovered/Resolved]
  - Head discomfort [Recovering/Resolving]
  - Tinnitus [Recovered/Resolved]

NARRATIVE: CASE EVENT DATE: 20230119
